FAERS Safety Report 16786773 (Version 2)
Quarter: 2019Q3

REPORT INFORMATION
  Report Type: Spontaneous
  Country: CZ (occurrence: CZ)
  Receive Date: 20190909
  Receipt Date: 20190916
  Transmission Date: 20191005
  Serious: Yes (Hospitalization)
  Sender: FDA-Public Use
  Company Number: CZ-ROCHE-2397473

PATIENT
  Sex: Female

DRUGS (4)
  1. LEXAURIN [Concomitant]
     Active Substance: BROMAZEPAM
     Indication: ANXIETY
     Route: 048
     Dates: start: 2015
  2. OCREVUS [Suspect]
     Active Substance: OCRELIZUMAB
     Indication: MULTIPLE SCLEROSIS RELAPSE
     Route: 041
     Dates: start: 20190523
  3. CARZAP HCT [Concomitant]
     Indication: HYPERTENSION
     Dosage: 32/12.5 MG
     Route: 048
     Dates: start: 2016
  4. GABANOX [Concomitant]
     Active Substance: GABAPENTIN
     Indication: PARAESTHESIA
     Route: 048
     Dates: start: 2018

REACTIONS (1)
  - Diverticulitis [Recovering/Resolving]
